FAERS Safety Report 16959542 (Version 1)
Quarter: 2019Q4

REPORT INFORMATION
  Report Type: Report from Study
  Country: CN (occurrence: CN)
  Receive Date: 20191025
  Receipt Date: 20191025
  Transmission Date: 20200122
  Serious: Yes (Other)
  Sender: FDA-Public Use
  Company Number: CN-ROCHE-2454387

PATIENT

DRUGS (2)
  1. RITUXIMAB. [Suspect]
     Active Substance: RITUXIMAB
     Indication: B-CELL LYMPHOMA
     Dosage: THE STRENGTH OF RITUXIMAB USED WAS INITIALLY 100 MG AND SUBSEQUENTLY 500 MG STRENGTH. ON DAY 1 OF EA
     Route: 041
  2. DEXAMETHASONE. [Concomitant]
     Active Substance: DEXAMETHASONE
     Dosage: GIVEN EACH PRE RITUXIMAB AND ALSO TO TREAT EVENT
     Route: 040

REACTIONS (1)
  - Hyperpyrexia [Recovering/Resolving]
